FAERS Safety Report 18699286 (Version 1)
Quarter: 2021Q1

REPORT INFORMATION
  Report Type: Report from Study
  Country: FR (occurrence: FR)
  Receive Date: 20210104
  Receipt Date: 20210104
  Transmission Date: 20210419
  Serious: Yes (Other)
  Sender: FDA-Public Use
  Company Number: FR-PFIZER INC-2020515271

PATIENT
  Age: 15 Year
  Sex: Male
  Weight: 55 kg

DRUGS (8)
  1. ATGAM [Suspect]
     Active Substance: EQUINE THYMOCYTE IMMUNE GLOBULIN
     Indication: MYELOSUPPRESSION
     Dosage: 40 MG/KG, DAILY
     Route: 042
     Dates: start: 20201215, end: 20201215
  2. ATGAM [Suspect]
     Active Substance: EQUINE THYMOCYTE IMMUNE GLOBULIN
     Dosage: 40 MG/KG, DAILY
     Route: 042
     Dates: start: 20201217, end: 20201220
  3. CICLOSPORINE [Concomitant]
     Active Substance: CYCLOSPORINE
     Dosage: 5 MG/KG, DAILY
     Route: 042
  4. ATGAM [Suspect]
     Active Substance: EQUINE THYMOCYTE IMMUNE GLOBULIN
     Dosage: 40 MG/KG, DAILY
     Route: 042
     Dates: start: 20201216, end: 20201216
  5. SOLU?MEDROL [Concomitant]
     Active Substance: METHYLPREDNISOLONE SODIUM SUCCINATE
     Indication: PREMEDICATION
  6. POLARAMINE [Concomitant]
     Active Substance: DEXCHLORPHENIRAMINE MALEATE
     Indication: PREMEDICATION
  7. HYDROCORTISONE. [Concomitant]
     Active Substance: HYDROCORTISONE
     Indication: PREMEDICATION
  8. FORTUM [CEFTAZIDIME] [Concomitant]
     Active Substance: CEFTAZIDIME
     Indication: FEBRILE BONE MARROW APLASIA
     Dosage: 6 G, 3X/DAY
     Route: 042
     Dates: start: 20201207

REACTIONS (3)
  - Infusion related reaction [Recovering/Resolving]
  - Influenza [Recovering/Resolving]
  - Urticaria [Recovering/Resolving]

NARRATIVE: CASE EVENT DATE: 20201215
